FAERS Safety Report 5402016-5 (Version None)
Quarter: 2007Q3

REPORT INFORMATION
  Report Type: 
  Country: None (occurrence: None)
  Receive Date: 20070726
  Receipt Date: 20070717
  Transmission Date: 20080115
  Serious: Yes (Hospitalization)
  Sender: FDA-Public Use
  Company Number: 2007AL002819

PATIENT
  Age: 4 Year
  Sex: Female

DRUGS (1)
  1. THEOPHYLLINE [Suspect]
     Indication: ASTHMA

REACTIONS (11)
  - BLOOD CREATINE PHOSPHOKINASE INCREASED [None]
  - CEREBRAL ATROPHY [None]
  - DRUG LEVEL BELOW THERAPEUTIC [None]
  - ENCEPHALOPATHY [None]
  - HYPERAMMONAEMIA [None]
  - HYPERGLYCAEMIA [None]
  - HYPERPYREXIA [None]
  - INTELLIGENCE TEST ABNORMAL [None]
  - SERUM FERRITIN INCREASED [None]
  - SPEECH DISORDER [None]
  - STATUS EPILEPTICUS [None]
